FAERS Safety Report 9182990 (Version 1)
Quarter: 2012Q4

REPORT INFORMATION
  Report Type: 
  Country: GR (occurrence: GR)
  Receive Date: 20121031
  Receipt Date: 20121031
  Transmission Date: 20130627
  Serious: Yes (Hospitalization)
  Sender: FDA-Public Use
  Company Number: PHHY2011GR70288

PATIENT
  Age: 32 Year
  Sex: Female

DRUGS (1)
  1. EXTAVIA [Suspect]
     Indication: MULTIPLE SCLEROSIS
     Dosage: UNK
     Dates: start: 20110608

REACTIONS (4)
  - Mobility decreased [Unknown]
  - Skin reaction [Unknown]
  - Injection site erythema [Unknown]
  - Drug ineffective [Unknown]
